FAERS Safety Report 7898889-7 (Version None)
Quarter: 2011Q4

REPORT INFORMATION
  Report Type: 
  Country: None (occurrence: None)
  Receive Date: 20111107
  Receipt Date: 20111101
  Transmission Date: 20120403
  Serious: Yes (Hospitalization)
  Sender: FDA-Public Use
  Company Number: US-AMGEN-USASP2011057101

PATIENT
  Age: 58 Year
  Sex: Female

DRUGS (4)
  1. ADDERALL 5 [Concomitant]
  2. VITAMIN D [Concomitant]
     Dosage: 1 IU, 2 TIMES/WK
  3. LORTAB [Concomitant]
  4. PROLIA [Suspect]
     Indication: OSTEOPOROSIS POSTMENOPAUSAL
     Dosage: 60 MG, Q6MO
     Dates: start: 20111013

REACTIONS (3)
  - BACK PAIN [None]
  - DEPRESSION [None]
  - CHEST PAIN [None]
